FAERS Safety Report 6173979-8 (Version None)
Quarter: 2009Q2

REPORT INFORMATION
  Report Type: 
  Country: None (occurrence: None)
  Receive Date: 20090430
  Receipt Date: 20090422
  Transmission Date: 20091009
  Serious: Yes (Death, Hospitalization, Other)
  Sender: FDA-Public Use
  Company Number: US-PFIZER INC-2009198065

PATIENT
  Sex: Male
  Weight: 64.9 kg

DRUGS (12)
  1. CISPLATIN [Suspect]
     Indication: BLADDER CANCER
     Dosage: 70 MG/M2, DAY1 OF EVERY CYCLE
     Route: 042
     Dates: start: 20090202, end: 20090202
  2. CISPLATIN [Suspect]
     Dosage: 70 MG/M2, DAY1 OF EVERY CYCLE
     Route: 042
     Dates: start: 20090309, end: 20090309
  3. CISPLATIN [Suspect]
     Dosage: 70 MG/M2, DAY1 OF EVERY CYCLE
     Route: 042
     Dates: start: 20090330, end: 20090330
  4. SUTENT [Suspect]
     Indication: BLADDER CANCER
     Dosage: 37.5 MG, 14 DAYS EVERY CYCLE
     Route: 048
     Dates: start: 20090202, end: 20090215
  5. SUTENT [Suspect]
     Dosage: 37.5 MG, 14 DAYS EVERY CYCLE
     Route: 048
     Dates: start: 20090309, end: 20090323
  6. SUTENT [Suspect]
     Dosage: 37.5 MG, 14 DAYS EVERY CYCLE
     Route: 048
     Dates: start: 20090330, end: 20090411
  7. GEMCITABINE [Suspect]
     Indication: BLADDER CANCER
     Dosage: 1000 MG/M2, DAY1, DAY8, EVERY CYCLE
     Route: 042
     Dates: start: 20090202, end: 20090202
  8. GEMCITABINE [Suspect]
     Dosage: 1000 MG/M2, DAY1,DAY8, EVERY CYCLE
     Route: 042
     Dates: start: 20090209, end: 20090209
  9. GEMCITABINE [Suspect]
     Dosage: 1000 MG/M2, DAY1, DAY8, EVERY CYCLE
     Route: 042
     Dates: start: 20090309, end: 20090309
  10. GEMCITABINE [Suspect]
     Dosage: 1000 MG/M2, DAY1, DAY8, EVERY CYCLE
     Route: 042
     Dates: start: 20090316, end: 20090316
  11. GEMCITABINE [Suspect]
     Dosage: 1000 MG/M2, DAY1, DAY8, EVERY CYCLE
     Route: 042
     Dates: start: 20090330, end: 20090330
  12. GEMCITABINE [Suspect]
     Dosage: 1000 MG/M2, DAY1, DAY8, EVERY CYCLE
     Route: 042
     Dates: start: 20090406, end: 20090406

REACTIONS (4)
  - ASTHENIA [None]
  - DEATH [None]
  - DYSPNOEA [None]
  - PANCYTOPENIA [None]
